FAERS Safety Report 8023510-7 (Version None)
Quarter: 2012Q1

REPORT INFORMATION
  Report Type: 
  Country: None (occurrence: None)
  Receive Date: 20120105
  Receipt Date: 20111228
  Transmission Date: 20120608
  Serious: No
  Sender: FDA-Public Use
  Company Number: US-BIOGENIDEC-2011BI048808

PATIENT
  Sex: Female

DRUGS (4)
  1. AVONEX [Concomitant]
     Indication: MULTIPLE SCLEROSIS
     Route: 030
     Dates: start: 20090526
  2. TYSABRI [Suspect]
     Indication: MULTIPLE SCLEROSIS
     Route: 042
     Dates: start: 20111012
  3. TYSABRI [Suspect]
     Route: 042
     Dates: start: 20110323, end: 20110518
  4. TYSABRI [Suspect]
     Route: 042
     Dates: start: 20111214

REACTIONS (2)
  - STRESS [None]
  - POOR VENOUS ACCESS [None]
